FAERS Safety Report 7074120-X (Version None)
Quarter: 2010Q4

REPORT INFORMATION
  Report Type: 
  Country: None (occurrence: None)
  Receive Date: 20101020
  Receipt Date: 20101005
  Transmission Date: 20110411
  Serious: Yes (Other)
  Sender: FDA-Public Use
  Company Number: AUR-APL-2010-02517

PATIENT
  Sex: Female

DRUGS (3)
  1. LISINOPRIL [Suspect]
     Dates: start: 20100201
  2. AMLODIPINE BESYLATE [Suspect]
  3. HUMIRA [Suspect]
     Indication: PSORIASIS
     Dosage: 40MG/0.8ML

REACTIONS (4)
  - ARTERIAL OCCLUSIVE DISEASE [None]
  - BLOOD PRESSURE INCREASED [None]
  - COUGH [None]
  - HEADACHE [None]
